FAERS Safety Report 7492124-X (Version None)
Quarter: 2011Q2

REPORT INFORMATION
  Report Type: 
  Country: None (occurrence: None)
  Receive Date: 20110519
  Receipt Date: 20110104
  Transmission Date: 20111010
  Serious: No
  Sender: FDA-Public Use
  Company Number: US-NOVEN-11US001539

PATIENT
  Sex: Female

DRUGS (2)
  1. DAYTRANA [Suspect]
     Dosage: 20MG 1X/DAY: QD
     Route: 062
     Dates: end: 20080101
  2. DAYTRANA [Suspect]
     Indication: ATTENTION DEFICIT/HYPERACTIVITY DISORDER
     Dosage: 15MG 1X/DAY: QD
     Route: 062
     Dates: end: 20080101

REACTIONS (2)
  - APPLICATION SITE URTICARIA [None]
  - APPLICATION SITE PRURITUS [None]
